FAERS Safety Report 17278294 (Version 11)
Quarter: 2020Q2

REPORT INFORMATION
  Report Type: Spontaneous
  Country: CA (occurrence: CA)
  Receive Date: 20200116
  Receipt Date: 20200616
  Transmission Date: 20200713
  Serious: Yes (Hospitalization, Other)
  Sender: FDA-Public Use
  Company Number: CA-PFIZER INC-2020008590

PATIENT
  Age: 32 Year
  Sex: Female

DRUGS (14)
  1. SUTENT [Suspect]
     Active Substance: SUNITINIB MALATE
     Indication: RENAL CELL CARCINOMA
     Dosage: 50 MG, CYCLIC (ONE TIME EACH DAY, TAKE 2 WEEKS ON, THEN 1 WEEK OFF, EVERY 6 WEEKS)
     Route: 048
     Dates: start: 20200108, end: 2020
  2. NABILONE [Concomitant]
     Active Substance: NABILONE
     Dosage: 1 MG, UNK
  3. PANTOPRAZOLE [Concomitant]
     Active Substance: PANTOPRAZOLE
     Dosage: 40 MG, UNK
  4. DEXAMETHASONE. [Concomitant]
     Active Substance: DEXAMETHASONE
     Dosage: 4 MG, TAPERING OFF
  5. SENNOKOTT [Concomitant]
     Active Substance: SENNOSIDES A AND B
     Dosage: UNK, 3X/DAY
  6. DULCOLAX PI [Concomitant]
     Dosage: UNK
     Route: 054
  7. TRAZODONE [Concomitant]
     Active Substance: TRAZODONE HYDROCHLORIDE
     Dosage: 100 MG, HS (BEDTIME)
  8. METONIA [Concomitant]
     Active Substance: METOCLOPRAMIDE
     Dosage: 5 MG, 4X/DAY
  9. SUTENT [Suspect]
     Active Substance: SUNITINIB MALATE
     Dosage: 37.5 MG, CYCLIC (14 DAYS ON, 7 DAYS OFF)
     Route: 048
     Dates: start: 2020, end: 2020
  10. SUTENT [Suspect]
     Active Substance: SUNITINIB MALATE
     Dosage: 25 MG, CYCLIC (DAILY) FOR 2WKS (WEEKS) ON AND 1WK OFF)
     Dates: start: 2020, end: 2020
  11. EDOXABAN [Concomitant]
     Active Substance: EDOXABAN TOSYLATE
     Dosage: 60 MG, UNK
     Dates: start: 20200108
  12. METHANOL [Concomitant]
     Active Substance: METHYL ALCOHOL
     Dosage: 2.5 MG, 3X/DAY
  13. PREGABALIN. [Concomitant]
     Active Substance: PREGABALIN
     Dosage: 75 MG, 2X/DAY
  14. ZOFRAN [Concomitant]
     Active Substance: ONDANSETRON HYDROCHLORIDE
     Dosage: 8 MG, AS NEEDED

REACTIONS (4)
  - Paralysis [Unknown]
  - Drug intolerance [Unknown]
  - Neutropenia [Unknown]
  - Thrombocytopenia [Unknown]

NARRATIVE: CASE EVENT DATE: 2020
